FAERS Safety Report 18073921 (Version 1)
Quarter: 2020Q3

REPORT INFORMATION
  Report Type: Spontaneous
  Country: US (occurrence: US)
  Receive Date: 20200727
  Receipt Date: 20200727
  Transmission Date: 20201103
  Serious: Yes (Death, Other)
  Sender: FDA-Public Use
  Company Number: US-PFIZER INC-2020283086

PATIENT
  Age: 42 Year
  Sex: Female

DRUGS (2)
  1. XANAX [Suspect]
     Active Substance: ALPRAZOLAM
     Dosage: UNK, (INCREASED HER XANAX TO 6)
  2. XANAX [Suspect]
     Active Substance: ALPRAZOLAM
     Indication: PANIC ATTACK
     Dosage: UNK, DAILY, (3 XANAX A DAY FOR 20 YEARS)

REACTIONS (3)
  - Death [Fatal]
  - Prescribed overdose [Unknown]
  - Seizure [Unknown]

NARRATIVE: CASE EVENT DATE: 2020
